FAERS Safety Report 11014571 (Version 2)
Quarter: 2015Q2

REPORT INFORMATION
  Report Type: Spontaneous
  Country: US (occurrence: US)
  Receive Date: 20150412
  Receipt Date: 20150525
  Transmission Date: 20150821
  Serious: No
  Sender: FDA-Public Use
  Company Number: US-JNJFOC-20130915096

PATIENT
  Sex: Male

DRUGS (2)
  1. TRAMADOL [Suspect]
     Active Substance: TRAMADOL
     Indication: BACK PAIN
     Dosage: TWO TO THREE TIMES A DAY. INITIATED ABOUT 6 YEARS AGO.
     Route: 048
  2. ULTRAM [Suspect]
     Active Substance: TRAMADOL HYDROCHLORIDE
     Indication: BACK PAIN
     Dosage: TWO TO THREE TIMES A DAY.INITIATED ABOUT 6 YEARS AGO
     Route: 048

REACTIONS (1)
  - Back pain [Not Recovered/Not Resolved]
